FAERS Safety Report 10023434 (Version 1)
Quarter: 2013Q4

REPORT INFORMATION
  Report Type: Spontaneous
  Country: US (occurrence: None)
  Receive Date: 20131224
  Receipt Date: 20131224
  Transmission Date: 20140711
  Serious: Yes (Hospitalization, Other)
  Sender: FDA-Public Use
  Company Number: US-013542

PATIENT
  Age: 50 Year
  Sex: Female
  Weight: 61.69 kg

DRUGS (6)
  1. PICO-SALAX (NOT SPECIFIED) [Suspect]
     Indication: BOWEL PREPARATION
     Dosage: SPLIT DOSE METHOD; FIRST DOSE TAKEN AT 4 TO 5 PM.  2ND DOSE NOT TAKEN.?
     Dates: start: 20131016
  2. POTASSIUM [Concomitant]
  3. DEMADEX [Concomitant]
  4. ALDACTONE /00006201/ [Concomitant]
  5. PLAQUENIL /00072602/ [Concomitant]
  6. ENBREL [Concomitant]

REACTIONS (5)
  - Loss of consciousness [None]
  - Blood potassium decreased [None]
  - Blood sodium decreased [None]
  - Blood calcium decreased [None]
  - Headache [None]
